FAERS Safety Report 9514278 (Version 3)
Quarter: 2013Q4

REPORT INFORMATION
  Report Type: Spontaneous
  Country: JP (occurrence: JP)
  Receive Date: 20130910
  Receipt Date: 20131202
  Transmission Date: 20140711
  Serious: Yes (Life-Threatening, Hospitalization, Disabling)
  Sender: FDA-Public Use
  Company Number: JP-SANOFI-AVENTIS-2013SA089442

PATIENT
  Age: 59 Year
  Sex: Male
  Weight: 69 kg

DRUGS (21)
  1. ELPLAT [Suspect]
     Indication: COLON CANCER
     Route: 041
     Dates: start: 20100628, end: 20100628
  2. ELPLAT [Suspect]
     Indication: COLON CANCER
     Route: 041
     Dates: start: 20100712, end: 20100712
  3. CALCIUM LEVOFOLINATE [Suspect]
     Indication: COLON CANCER
     Route: 041
     Dates: start: 20100628, end: 20100629
  4. CALCIUM LEVOFOLINATE [Suspect]
     Indication: COLON CANCER
     Route: 041
     Dates: start: 20100712, end: 20100713
  5. FLUOROURACIL [Suspect]
     Indication: COLON CANCER
     Dosage: BOLUS
     Route: 040
     Dates: start: 20100628, end: 20100629
  6. FLUOROURACIL [Suspect]
     Indication: COLON CANCER
     Dosage: INFUSION
     Route: 041
     Dates: start: 20100628, end: 20100629
  7. FLUOROURACIL [Suspect]
     Indication: COLON CANCER
     Dosage: INFUSION
     Route: 040
     Dates: start: 20100712, end: 20100713
  8. FLUOROURACIL [Suspect]
     Indication: COLON CANCER
     Dosage: INFUSION
     Route: 041
     Dates: start: 20100712, end: 20100713
  9. THYRADIN [Concomitant]
     Dates: start: 20100514, end: 20130903
  10. MUCOSTA [Concomitant]
     Dates: start: 20100514, end: 20130903
  11. LOXONIN [Concomitant]
     Dates: start: 20100514, end: 20130903
  12. KYTRIL [Concomitant]
     Dates: start: 20100628, end: 20100712
  13. DECADRON [Concomitant]
     Dates: start: 20100628, end: 20100712
  14. ROPION [Concomitant]
     Dates: start: 20100806, end: 20100817
  15. MODACIN [Concomitant]
     Dates: start: 20100809, end: 20100814
  16. SOLUMEDROL [Concomitant]
     Dates: start: 20100812, end: 20100921
  17. FIRSTCIN [Concomitant]
     Dates: start: 20100814, end: 20100825
  18. MINOPEN [Concomitant]
     Dates: start: 20100820, end: 20100922
  19. PREDONINE [Concomitant]
     Dates: start: 20100825, end: 20100927
  20. PREDNISOLONE [Concomitant]
     Dates: start: 20100901, end: 20110126
  21. VANCOMYCIN [Concomitant]
     Dates: start: 20100908, end: 20100912

REACTIONS (2)
  - Pharyngeal abscess [Recovered/Resolved]
  - Quadriplegia [Recovered/Resolved with Sequelae]
